FAERS Safety Report 14205060 (Version 5)
Quarter: 2017Q4

REPORT INFORMATION
  Report Type: Report from Study
  Country: GB (occurrence: GB)
  Receive Date: 20171120
  Receipt Date: 20171229
  Transmission Date: 20180321
  Serious: Yes (Death)
  Sender: FDA-Public Use
  Company Number: GB-PFIZER INC-2017494092

PATIENT
  Age: 63 Year
  Sex: Female
  Weight: 87.6 kg

DRUGS (11)
  1. OMEPRAZOLE. [Concomitant]
     Active Substance: OMEPRAZOLE
     Indication: HIATUS HERNIA
     Dosage: 40 MG, 1X/DAY
     Route: 048
     Dates: start: 2013
  2. LORAZEPAM. [Concomitant]
     Active Substance: LORAZEPAM
     Indication: PAIN
  3. LORAZEPAM. [Concomitant]
     Active Substance: LORAZEPAM
     Indication: ANXIETY
     Dosage: 0.5 MG, AS NEEDED
     Route: 048
     Dates: start: 20170731
  4. LORAZEPAM. [Concomitant]
     Active Substance: LORAZEPAM
     Indication: DYSPNOEA
  5. PALBOCICLIB [Suspect]
     Active Substance: PALBOCICLIB
     Indication: NON-SMALL CELL LUNG CANCER
     Dosage: 125 MG, CYCLIC (ONCE A DAY FOR 21 DAYS, 7 DAYS OFF)
     Route: 048
     Dates: start: 20160401
  6. CARBOCISTEINE [Concomitant]
     Active Substance: CARBOCYSTEINE
     Indication: PRODUCTIVE COUGH
     Dosage: 750 MG, 2X/DAY
     Route: 048
     Dates: start: 20161014
  7. CETRIZINE [Concomitant]
     Active Substance: CETIRIZINE HYDROCHLORIDE
     Indication: SEASONAL ALLERGY
     Dosage: 10 MG, 1X/DAY
     Route: 048
     Dates: start: 20170324
  8. MAGNESIUM [Concomitant]
     Active Substance: MAGNESIUM
     Indication: HYPOMAGNESAEMIA
     Dosage: 2 DF, AS NEEDED
     Route: 048
     Dates: start: 20170918
  9. PARACETAMOL [Concomitant]
     Active Substance: ACETAMINOPHEN
     Indication: ARTHRALGIA
     Dosage: 1 G, 2X/DAY
     Route: 048
     Dates: start: 2015
  10. SERETIDE [Concomitant]
     Active Substance: FLUTICASONE PROPIONATE\SALMETEROL XINAFOATE
     Indication: LOWER RESPIRATORY TRACT INFECTION
     Dosage: 2 DF (PUFFS), 2X/DAY (SERETIDE INHALER 250)
     Route: 055
     Dates: start: 20161209
  11. DEXAMETHASONE. [Concomitant]
     Active Substance: DEXAMETHASONE
     Indication: METASTASES TO CENTRAL NERVOUS SYSTEM
     Dosage: 8 MG, 1X/DAY
     Route: 048
     Dates: start: 20170818

REACTIONS (1)
  - Neoplasm progression [Fatal]
